FAERS Safety Report 8068057 (Version 8)
Quarter: 2013Q3

REPORT INFORMATION
  Report Type: Report from Study
  Country: US (occurrence: US)
  Receive Date: 20110803
  Receipt Date: 20130715
  Transmission Date: 20140515
  Serious: Yes (Life-Threatening, Hospitalization, Other)
  Sender: FDA-Public Use
  Company Number: US-BRISTOL-MYERS SQUIBB COMPANY-15894199

PATIENT
  Age: 82 Year
  Sex: Female

DRUGS (8)
  1. METFORMIN HCL [Suspect]
     Indication: TYPE 2 DIABETES MELLITUS
  2. LANTUS [Suspect]
     Indication: TYPE 2 DIABETES MELLITUS
  3. PLACEBO [Suspect]
     Indication: TYPE 2 DIABETES MELLITUS
     Dosage: INTERRUPTED:03JUL11
     Dates: start: 20100824
  4. LISINOPRIL + HCTZ [Suspect]
  5. CELEBREX [Suspect]
  6. ASPIRIN [Concomitant]
  7. MEDROL [Concomitant]
     Dosage: TABS
     Route: 048
     Dates: start: 20110621, end: 20110625
  8. TRIAMCINOLONE [Concomitant]
     Dates: start: 20110621, end: 20110630

REACTIONS (3)
  - Urosepsis [Recovered/Resolved]
  - Renal failure acute [Recovered/Resolved]
  - Fluid overload [Recovered/Resolved]
